FAERS Safety Report 13046920 (Version 3)
Quarter: 2017Q1

REPORT INFORMATION
  Report Type: Spontaneous
  Country: SE (occurrence: SE)
  Receive Date: 20161220
  Receipt Date: 20170313
  Transmission Date: 20170428
  Serious: Yes (Hospitalization, Other)
  Sender: FDA-Public Use
  Company Number: PHHY2016SE171457

PATIENT
  Age: 45 Year
  Sex: Male
  Weight: 116 kg

DRUGS (1)
  1. COSENTYX [Suspect]
     Active Substance: SECUKINUMAB
     Indication: PSORIASIS
     Dosage: 300 MG, QMO
     Route: 058
     Dates: start: 20160208, end: 20161119

REACTIONS (2)
  - Clear cell renal cell carcinoma [Unknown]
  - Flank pain [Unknown]

NARRATIVE: CASE EVENT DATE: 20160927
